FAERS Safety Report 8960733 (Version 3)
Quarter: 2013Q1

REPORT INFORMATION
  Report Type: Spontaneous
  Country: IT (occurrence: None)
  Receive Date: 20121130
  Receipt Date: 20121220
  Transmission Date: 20140127
  Serious: Yes (Other)
  Sender: FDA-Public Use
  Company Number: ADR-2012-02144

PATIENT
  Age: 9 Year
  Sex: Male

DRUGS (1)
  1. LIORESAL [Suspect]

REACTIONS (4)
  - Pump reservoir issue [None]
  - Device dislocation [None]
  - Cough [None]
  - Vomiting [None]
